FAERS Safety Report 20214898 (Version 1)
Quarter: 2021Q4

REPORT INFORMATION
  Report Type: Spontaneous
  Country: JP (occurrence: JP)
  Receive Date: 20211222
  Receipt Date: 20211222
  Transmission Date: 20220303
  Serious: Yes (Hospitalization)
  Sender: FDA-Public Use
  Company Number: JP-JNJFOC-20211125062

PATIENT
  Age: 88 Year
  Sex: Female
  Weight: 31.7 kg

DRUGS (11)
  1. SIMPONI [Suspect]
     Active Substance: GOLIMUMAB
     Indication: Rheumatoid arthritis
     Route: 058
  2. CALCIUM [Concomitant]
     Active Substance: CALCIUM
  3. PANVITAN [VITAMINS NOS] [Concomitant]
  4. NALFURAFINE HYDROCHLORIDE OD [Concomitant]
  5. POLARAMINE [Concomitant]
     Active Substance: DEXCHLORPHENIRAMINE MALEATE
  6. AZULOXA [Concomitant]
  7. POLAPREZINC [Concomitant]
     Active Substance: POLAPREZINC
  8. MIRCERA [Concomitant]
     Active Substance: METHOXY POLYETHYLENE GLYCOL-EPOETIN BETA
  9. DENOSUMAB [Concomitant]
     Active Substance: DENOSUMAB
  10. FERRIC CITRATE ANHYDROUS [Concomitant]
     Active Substance: FERRIC CITRATE ANHYDROUS
     Dosage: AFTER BREAKFAST AND DINNER
     Route: 048
  11. FAMOTIDINE [Concomitant]
     Active Substance: FAMOTIDINE

REACTIONS (2)
  - Fracture [Recovering/Resolving]
  - Fall [Recovering/Resolving]

NARRATIVE: CASE EVENT DATE: 20211014
